FAERS Safety Report 19066479 (Version 1)
Quarter: 2021Q1

REPORT INFORMATION
  Report Type: Spontaneous
  Country: US (occurrence: US)
  Receive Date: 20210328
  Receipt Date: 20210328
  Transmission Date: 20210420
  Serious: Yes (Other)
  Sender: FDA-Public Use
  Company Number: US-TEVA-2021-US-1894835

PATIENT
  Sex: Male

DRUGS (3)
  1. ZANTAC [Suspect]
     Active Substance: RANITIDINE HYDROCHLORIDE
     Route: 065
  2. CLONAZEPAM ACCORD [Suspect]
     Active Substance: CLONAZEPAM
     Route: 065
  3. GABAPENTIN ACTAVIS [Suspect]
     Active Substance: GABAPENTIN
     Route: 065

REACTIONS (1)
  - Bladder cancer [Unknown]
